FAERS Safety Report 7293418-3 (Version None)
Quarter: 2011Q1

REPORT INFORMATION
  Report Type: 
  Country: None (occurrence: None)
  Receive Date: 20110215
  Receipt Date: 20110208
  Transmission Date: 20110831
  Serious: Yes (Disabling, Other)
  Sender: FDA-Public Use
  Company Number: US-ELI_LILLY_AND_COMPANY-US201102002483

PATIENT
  Sex: Female

DRUGS (2)
  1. HUMALOG MIX 75/25 [Suspect]
     Indication: DIABETES MELLITUS
     Dosage: 45 U, 2/D
     Dates: start: 19990101
  2. HUMALOG MIX 75/25 [Suspect]
     Dosage: 45 U, 2/D
     Dates: start: 19990101

REACTIONS (1)
  - SKIN ULCER [None]
